FAERS Safety Report 6539308-2 (Version None)
Quarter: 2010Q1

REPORT INFORMATION
  Report Type: 
  Country: None (occurrence: None)
  Receive Date: 20100115
  Receipt Date: 20100105
  Transmission Date: 20100710
  Serious: Yes (Other)
  Sender: FDA-Public Use
  Company Number: US-AMGEN-QUU358643

PATIENT
  Sex: Female
  Weight: 132 kg

DRUGS (8)
  1. NEULASTA [Suspect]
     Indication: CHEMOTHERAPY
     Route: 058
     Dates: start: 20090716
  2. ADRIAMYCIN PFS [Concomitant]
     Dates: start: 20090701
  3. BLEOMYCIN SULFATE [Concomitant]
     Dates: start: 20090701
  4. VINBLASTINE [Concomitant]
     Dates: start: 20090701
  5. DACARBAZINE [Concomitant]
     Dates: start: 20090701
  6. ALOXI [Concomitant]
  7. DEXAMETHASONE [Concomitant]
  8. EMEND [Concomitant]

REACTIONS (8)
  - DYSPNOEA [None]
  - EYE PRURITUS [None]
  - HYPERSENSITIVITY [None]
  - OCULAR HYPERAEMIA [None]
  - OROPHARYNGEAL PAIN [None]
  - PHARYNGEAL OEDEMA [None]
  - PRURITUS [None]
  - URTICARIA [None]
